FAERS Safety Report 6027969-6 (Version None)
Quarter: 2009Q1

REPORT INFORMATION
  Report Type: 
  Country: None (occurrence: None)
  Receive Date: 20090105
  Receipt Date: 20081230
  Transmission Date: 20090719
  Serious: Yes (Other)
  Sender: FDA-Public Use
  Company Number: ES-MERCK-0812ESP00040

PATIENT
  Sex: Female

DRUGS (1)
  1. COSOPT [Suspect]
     Route: 047
     Dates: start: 20060101

REACTIONS (4)
  - ANTINUCLEAR ANTIBODY POSITIVE [None]
  - DRUG INEFFECTIVE [None]
  - OPTIC NEUROPATHY [None]
  - SYSTEMIC LUPUS ERYTHEMATOSUS [None]
